FAERS Safety Report 5424711-4 (Version None)
Quarter: 2007Q3

REPORT INFORMATION
  Report Type: 
  Country: None (occurrence: None)
  Receive Date: 20070824
  Receipt Date: 20070815
  Transmission Date: 20080115
  Serious: Yes (Hospitalization)
  Sender: FDA-Public Use
  Company Number: FI-JNJFOC-20070803624

PATIENT
  Sex: Female

DRUGS (10)
  1. RISPERDAL [Suspect]
     Indication: DEMENTIA ALZHEIMER'S TYPE
     Route: 048
  2. RISPERDAL [Suspect]
     Indication: ABNORMAL BEHAVIOUR
     Route: 048
  3. MAREVAN [Concomitant]
     Indication: CEREBRAL INFARCTION
     Route: 048
  4. PREDNISONE TAB [Concomitant]
     Indication: POLYMYALGIA RHEUMATICA
     Route: 048
  5. CALCICHEW D3 FORTE [Concomitant]
     Indication: OSTEOPOROSIS
     Route: 048
  6. PARA-TABS [Concomitant]
     Indication: PAIN
     Route: 048
  7. COHEMIN DEPOT [Concomitant]
     Indication: ANAEMIA
  8. OPHTAN BLOCANOL [Concomitant]
  9. ARICEPT [Concomitant]
     Indication: DEMENTIA ALZHEIMER'S TYPE
  10. MULTITABS [Concomitant]
     Route: 048

REACTIONS (4)
  - COORDINATION ABNORMAL [None]
  - EXTENSOR PLANTAR RESPONSE [None]
  - SPEECH DISORDER [None]
  - VISUAL ACUITY REDUCED [None]
